FAERS Safety Report 20539118 (Version 5)
Quarter: 2022Q3

REPORT INFORMATION
  Report Type: Report from Study
  Country: US (occurrence: US)
  Receive Date: 20220302
  Receipt Date: 20220913
  Transmission Date: 20221027
  Serious: No
  Sender: FDA-Public Use
  Company Number: US-NOVARTISTESTPH-NVSC2022US049934

PATIENT
  Sex: Female

DRUGS (1)
  1. ENTRESTO [Suspect]
     Active Substance: SACUBITRIL\VALSARTAN
     Indication: Product used for unknown indication
     Dosage: 1 DOSAGE FORM, BID (24/26 MG)
     Route: 048
     Dates: start: 20211128

REACTIONS (9)
  - Weight decreased [Unknown]
  - Memory impairment [Unknown]
  - Ill-defined disorder [Unknown]
  - Rhinorrhoea [Unknown]
  - Anaemia [Recovering/Resolving]
  - Asthenia [Unknown]
  - Hypersensitivity [Unknown]
  - Cough [Unknown]
  - Product dose omission in error [Unknown]
